FAERS Safety Report 8044720 (Version 3)
Quarter: 2012Q4

REPORT INFORMATION
  Report Type: Spontaneous
  Country: US (occurrence: None)
  Receive Date: 20110705
  Receipt Date: 20121022
  Transmission Date: 20130627
  Serious: Yes (Hospitalization, Disabling, Other)
  Sender: FDA-Public Use
  Company Number: 2011MA007910

PATIENT
  Sex: Female
  Weight: 53.07 kg

DRUGS (117)
  1. METOCLOPRAMIDE [Suspect]
     Indication: IMPAIRED GASTRIC EMPTYING
     Dosage: 10 MG; 3-6 per day
     Dates: start: 1978, end: 20020310
  2. ALBUTEROL [Concomitant]
  3. AMITRIPTYLINE HYDROCHLORIDE [Concomitant]
  4. ATIVAN [Concomitant]
  5. ATROVENT [Concomitant]
  6. BENADRYL [Concomitant]
  7. COMPAZINE [Concomitant]
  8. DEPO-PROVERA [Concomitant]
  9. DIETARY SUPPLEMENTS [Concomitant]
  10. INDERAL [Concomitant]
  11. IRON [Concomitant]
  12. LEVOTHROID [Concomitant]
  13. NASACORT [Concomitant]
  14. PEPCID [Concomitant]
  15. PRECOSE [Concomitant]
  16. PROCHLORPERAZINE [Concomitant]
  17. PROMETHAZINE [Concomitant]
  18. PROPULSID [Concomitant]
  19. PROVENTIL [Concomitant]
  20. PULMICORT FLEXHALER [Concomitant]
  21. SALT TABLETS [Concomitant]
  22. SINGULAIR [Concomitant]
  23. STEROIDS [Concomitant]
  24. TENORMIN [Concomitant]
  25. THEO-DUR [Concomitant]
  26. THORAZINE [Concomitant]
  27. TRILEPTAL [Concomitant]
  28. VISTARIL [Concomitant]
  29. VITAMIN B12 [Concomitant]
  30. VITAMIN D [Concomitant]
  31. VITAMIN E [Concomitant]
  32. VITAMIN K [Concomitant]
  33. WELLBUTRIN [Concomitant]
  34. HYDROCHLOROTHIAZIDE [Concomitant]
  35. AMITIZA [Concomitant]
  36. AMOXICILLIN [Concomitant]
  37. ASTELIN [Concomitant]
  38. ATENOLOL [Concomitant]
  39. AZITHROMYCIN [Concomitant]
  40. BELLADONNA/ PHENOBARBITAL [Concomitant]
  41. BISACODYL [Concomitant]
  42. BUPROPION XL [Concomitant]
  43. CARAFATE [Concomitant]
  44. CARBAMAZEPINE [Concomitant]
  45. CEFPODOXIME [Concomitant]
  46. CEPHALEXIN [Concomitant]
  47. CHOLESTYRAMINE [Concomitant]
  48. CHLORTHIALIDONE [Concomitant]
  49. CITALOPRAM [Concomitant]
  50. CLARINEX [Concomitant]
  51. CLIMARA PRO PATCH [Concomitant]
  52. CLINDESSE CREAM [Concomitant]
  53. CORTISONE [Concomitant]
  54. CRESTOR [Concomitant]
  55. DEXAMETHASONE [Concomitant]
  56. DICYCLOMINE [Concomitant]
  57. DOXAZOSIN [Concomitant]
  58. FAMOTIDINE [Concomitant]
  59. FINACEA TOPICAL [Concomitant]
  60. FLUCONAZOLE [Concomitant]
  61. FLUDROCORTISONES [Concomitant]
  62. GABAPENTIN [Concomitant]
  63. GLUCERNA LIQUID [Concomitant]
  64. GLYCOLAX [Concomitant]
  65. GLYSET [Concomitant]
  66. GUAIFENESIN DM [Concomitant]
  67. HYOSCYAMINE [Concomitant]
  68. HYDROCORTISONE [Concomitant]
  69. IBUPROFEN [Concomitant]
  70. HUMALOG [Concomitant]
  71. IPRATROPIUM/ ALBUTEROL [Concomitant]
  72. KETOCONAZOLE TOPICAL [Concomitant]
  73. LACTULOSE [Concomitant]
  74. LEXAPRO [Concomitant]
  75. LIDOCAINE [Concomitant]
  76. LORATADINE [Concomitant]
  77. LORAZEPAM [Concomitant]
  78. LUGOL^S SOLUTION [Concomitant]
  79. LUNESTA [Concomitant]
  80. MEDROXYPROGESTERONE [Concomitant]
  81. METANX TOPICAL [Concomitant]
  82. METFORMIN [Concomitant]
  83. METHYLPREDNISOLONE [Concomitant]
  84. METROGEL TOPICAL [Concomitant]
  85. MICONAZOLE 7 CREAM [Concomitant]
  86. NASONEX [Concomitant]
  87. OCTREOTIDE [Concomitant]
  88. OMEPRAZOLE [Concomitant]
  89. OMNICEF [Concomitant]
  90. PANTOPRAZOLE [Concomitant]
  91. PHENAZOPYRIDINE [Concomitant]
  92. PRAMOSONE TOPICAL [Concomitant]
  93. PRANDIN [Concomitant]
  94. PRECOSE [Concomitant]
  95. PREDNISONE [Concomitant]
  96. PREFERRED PLUS SYRUP [Concomitant]
  97. PREVACID [Concomitant]
  98. PROCHLORPERAZINE [Concomitant]
  99. PROCTOSOL-HC CREAM [Concomitant]
  100. PULMICORT [Concomitant]
  101. RA SENNA [Concomitant]
  102. SANCTURA [Concomitant]
  103. SENOKOT [Concomitant]
  104. SENSIPAR [Concomitant]
  105. SEREVENT [Concomitant]
  106. SERTRALINE [Concomitant]
  107. SPIRIVA [Concomitant]
  108. STIMULANT LAXATIVE [Concomitant]
  109. SUCRALFATE [Concomitant]
  110. TAZORAC CREAM 0.05% [Concomitant]
  111. TRAMADOL [Concomitant]
  112. TRILIPIX [Concomitant]
  113. VANCOCIN [Concomitant]
  114. VANIQA CREAM [Concomitant]
  115. VITAMIN D2 [Concomitant]
  116. VUSION OINTMENT [Concomitant]
  117. HORMONE RELACEMENT THERAPIES (UNSPECIFIED) [Concomitant]

REACTIONS (62)
  - Tardive dyskinesia [None]
  - Extrapyramidal disorder [None]
  - Tremor [None]
  - Restless legs syndrome [None]
  - Parkinsonism [None]
  - Economic problem [None]
  - Movement disorder [None]
  - Impaired gastric emptying [None]
  - Asthma [None]
  - Cholelithiasis [None]
  - Abdominal adhesions [None]
  - Palpitations [None]
  - Dyspnoea [None]
  - Chronic obstructive pulmonary disease [None]
  - Nocturia [None]
  - Constipation [None]
  - Vomiting [None]
  - Nausea [None]
  - Arthritis [None]
  - Rash [None]
  - Thirst [None]
  - Mania [None]
  - Hypersensitivity [None]
  - Attention deficit/hyperactivity disorder [None]
  - Amnesia [None]
  - Malabsorption [None]
  - Autonomic failure syndrome [None]
  - Psychomotor hyperactivity [None]
  - Hypothyroidism [None]
  - Tobacco abuse [None]
  - Hypercalciuria [None]
  - Nephrolithiasis [None]
  - Spinal osteoarthritis [None]
  - Myofascial pain syndrome [None]
  - Emphysema [None]
  - Kyphosis [None]
  - Muscle tightness [None]
  - Hypoaesthesia [None]
  - Asthenia [None]
  - Autonomic neuropathy [None]
  - Insomnia [None]
  - Nervousness [None]
  - Anxiety [None]
  - Perineurial cyst [None]
  - Orthostatic hypotension [None]
  - Arrhythmia [None]
  - Blood glucose fluctuation [None]
  - Paraesthesia [None]
  - Decreased appetite [None]
  - Dizziness [None]
  - Fatigue [None]
  - Dyspnoea exertional [None]
  - Vitamin B12 deficiency [None]
  - Cardiolipin antibody positive [None]
  - Lordosis [None]
  - Muscle spasms [None]
  - Renal disorder [None]
  - Adrenal insufficiency [None]
  - Parathyroid disorder [None]
  - Cerebellar ataxia [None]
  - Renal failure [None]
  - Ankle fracture [None]
